FAERS Safety Report 7278509-5 (Version None)
Quarter: 2011Q1

REPORT INFORMATION
  Report Type: 
  Country: None (occurrence: None)
  Receive Date: 20110202
  Receipt Date: 20110202
  Transmission Date: 20110831
  Serious: Yes (Other)
  Sender: FDA-Public Use
  Company Number: None

PATIENT
  Age: 26 Year
  Sex: Female
  Weight: 49.8957 kg

DRUGS (1)
  1. LOSEASONIQUE [Suspect]
     Indication: ENDOMETRIOSIS
     Dosage: 0.1 MG 1 TABLET A DAY PO
     Route: 048
     Dates: start: 20110101, end: 20110131

REACTIONS (3)
  - HYPERHIDROSIS [None]
  - ABNORMAL DREAMS [None]
  - ABNORMAL SLEEP-RELATED EVENT [None]
